FAERS Safety Report 5208289-6 (Version None)
Quarter: 2007Q1

REPORT INFORMATION
  Report Type: 
  Country: None (occurrence: None)
  Receive Date: 20070110
  Receipt Date: 20070110
  Transmission Date: 20070707
  Serious: Yes (Hospitalization)
  Sender: FDA-Public Use
  Company Number: None

PATIENT
  Age: 45 Year
  Sex: Female
  Weight: 71.9 kg

DRUGS (2)
  1. CETUXIMAB [Suspect]
     Indication: NON-SMALL CELL LUNG CANCER
     Dosage: 250 MG , IV , WKLY
     Route: 042
     Dates: start: 20061227
  2. ALIMTA [Concomitant]
     Dosage: 500 MG, IV, Q 21 DAYS
     Route: 042
     Dates: start: 20061227

REACTIONS (3)
  - DISEASE PROGRESSION [None]
  - FEMUR FRACTURE [None]
  - PAIN IN EXTREMITY [None]
